FAERS Safety Report 11276323 (Version 1)
Quarter: 2015Q3

REPORT INFORMATION
  Report Type: Spontaneous
  Country: US (occurrence: None)
  Receive Date: 20150715
  Receipt Date: 20150715
  Transmission Date: 20151125
  Serious: Yes (Disabling)
  Sender: FDA-Public Use
  Company Number: None

PATIENT
  Age: 65 Year
  Sex: Female
  Weight: 90.72 kg

DRUGS (15)
  1. CLORAZEPAM [Concomitant]
  2. VITAMIN C [Concomitant]
     Active Substance: ASCORBIC ACID
  3. LEVAQUIN [Suspect]
     Active Substance: LEVOFLOXACIN
     Indication: UPPER RESPIRATORY TRACT INFECTION
     Dosage: 1 PILL
     Route: 048
     Dates: start: 20150609, end: 20150618
  4. NORCO [Concomitant]
     Active Substance: ACETAMINOPHEN\HYDROCODONE BITARTRATE
  5. PREDNISONE. [Concomitant]
     Active Substance: PREDNISONE
  6. CPAP MACHINE [Concomitant]
  7. L-GLUTAMINE [Concomitant]
  8. DAILY MULTIPLE VITAMIN [Concomitant]
  9. XYREM [Concomitant]
     Active Substance: SODIUM OXYBATE
  10. VITAMINS B12 [Concomitant]
  11. FISH OIL [Concomitant]
     Active Substance: FISH OIL
  12. ADDERRALL [Concomitant]
  13. MILK THISTLE [Concomitant]
     Active Substance: MILK THISTLE
  14. LEVAQUIN [Suspect]
     Active Substance: LEVOFLOXACIN
     Indication: SINUSITIS
     Dosage: 1 PILL
     Route: 048
     Dates: start: 20150609, end: 20150618
  15. AMBIEN [Concomitant]
     Active Substance: ZOLPIDEM TARTRATE

REACTIONS (6)
  - Musculoskeletal pain [None]
  - Pain [None]
  - Peripheral swelling [None]
  - Arthralgia [None]
  - Paraesthesia [None]
  - Tendonitis [None]

NARRATIVE: CASE EVENT DATE: 20150609
